FAERS Safety Report 15413337 (Version 1)
Quarter: 2018Q3

REPORT INFORMATION
  Report Type: Spontaneous
  Country: JP (occurrence: JP)
  Receive Date: 20180921
  Receipt Date: 20180921
  Transmission Date: 20181010
  Serious: Yes (Other)
  Sender: FDA-Public Use
  Company Number: JP-BAYER-2017-139871

PATIENT
  Age: 66 Year
  Sex: Male

DRUGS (3)
  1. STIVARGA [Suspect]
     Active Substance: REGORAFENIB
     Indication: COLON CANCER RECURRENT
     Dosage: DAILY DOSE 160 MG
     Dates: start: 201308
  2. STIVARGA [Suspect]
     Active Substance: REGORAFENIB
     Indication: COLON CANCER RECURRENT
     Dosage: DAILY DOSE 160 MG
  3. STIVARGA [Suspect]
     Active Substance: REGORAFENIB
     Indication: COLON CANCER RECURRENT
     Dosage: DAILY DOSE 120 MG

REACTIONS (4)
  - Cachexia [None]
  - Malaise [None]
  - Hepatic function abnormal [Recovering/Resolving]
  - Dysphonia [Recovering/Resolving]
